FAERS Safety Report 9520690 (Version 1)
Quarter: 2013Q3

REPORT INFORMATION
  Report Type: Spontaneous
  Country: US (occurrence: US)
  Receive Date: 20130913
  Receipt Date: 20130913
  Transmission Date: 20140515
  Serious: Yes (Other)
  Sender: FDA-Public Use
  Company Number: US-SHIRE-ALL1-2013-06178

PATIENT
  Sex: Female

DRUGS (8)
  1. ADDERALL XR [Suspect]
     Indication: ATTENTION DEFICIT/HYPERACTIVITY DISORDER
     Dosage: 50 MG (TWO 25 MG), 1X/DAY:QD
     Route: 048
     Dates: start: 200412
  2. ADDERALL XR [Suspect]
     Dosage: 25 MG, 1X/DAY:QD (LATER IN THE DAY)
     Route: 048
     Dates: start: 200412
  3. NEXIUM                             /01479302/ [Concomitant]
     Indication: GASTROOESOPHAGEAL REFLUX DISEASE
     Dosage: 40 MG, 1X/DAY:QD
     Route: 048
  4. LOSARTAN [Concomitant]
     Indication: HYPERTENSION
     Dosage: 12.5 MG, 1X/DAY:QD
     Route: 048
  5. NORTREL                            /00318901/ [Concomitant]
     Indication: CONTRACEPTION
     Dosage: UNK UNK, UNKNOWN
     Route: 065
     Dates: end: 2009
  6. CAMILA [Concomitant]
     Indication: CONTRACEPTION
     Dosage: 0.35 MG, 1X/DAY:QD
     Route: 048
     Dates: start: 2009, end: 2013
  7. JOLIVETTE-28 [Concomitant]
     Indication: PRODUCT USED FOR UNKNOWN INDICATION
     Dosage: UNK UNK, UNKNOWN
     Route: 065
     Dates: start: 2013
  8. ASPIRIN [Concomitant]
     Indication: PAIN
     Dosage: 81 MG, AS REQ^D
     Route: 048

REACTIONS (9)
  - Systemic lupus erythematosus [Not Recovered/Not Resolved]
  - Spinal osteoarthritis [Not Recovered/Not Resolved]
  - Frustration [Not Recovered/Not Resolved]
  - Pain [Recovering/Resolving]
  - Somnolence [Not Recovered/Not Resolved]
  - Agitation [Not Recovered/Not Resolved]
  - Drug ineffective [Not Recovered/Not Resolved]
  - Prescribed overdose [Not Recovered/Not Resolved]
  - Inappropriate schedule of drug administration [Not Recovered/Not Resolved]
